FAERS Safety Report 4387486-6 (Version None)
Quarter: 2004Q2

REPORT INFORMATION
  Report Type: 
  Country: None (occurrence: None)
  Receive Date: 20040630
  Receipt Date: 20040526
  Transmission Date: 20050107
  Serious: Yes (Other)
  Sender: FDA-Public Use
  Company Number: US-BRISTOL-MYERS SQUIBB COMPANY-12598256

PATIENT
  Age: 43 Year
  Sex: Male
  Weight: 66 kg

DRUGS (7)
  1. REYATAZ [Suspect]
     Indication: HIV INFECTION
     Route: 048
     Dates: start: 20040101
  2. EPIVIR [Concomitant]
  3. ZIAGEN [Concomitant]
  4. LOPRESSOR [Concomitant]
  5. TARKA [Concomitant]
     Indication: HYPERTENSION
  6. DAPSONE [Concomitant]
  7. DILANTIN [Concomitant]

REACTIONS (2)
  - MUSCLE SPASMS [None]
  - NEUROPATHY PERIPHERAL [None]
